FAERS Safety Report 8133998-9 (Version None)
Quarter: 2012Q1

REPORT INFORMATION
  Report Type: 
  Country: None (occurrence: None)
  Receive Date: 20120213
  Receipt Date: 20120118
  Transmission Date: 20120608
  Serious: Yes (Hospitalization, Other)
  Sender: FDA-Public Use
  Company Number: PHHY2012FR003925

PATIENT
  Age: 65 Year
  Sex: Male

DRUGS (9)
  1. ANGIOTENSIN CONVERTING ENZYME BLOCKERS [Concomitant]
  2. ASPIRIN [Concomitant]
  3. METFORMIN HCL [Concomitant]
  4. IRBESARTAN [Concomitant]
  5. CRESTOR [Concomitant]
     Dosage: 20 MG
  6. PLAVIX [Concomitant]
  7. RASILEZ [Suspect]
     Indication: HYPERTENSION
     Dosage: 150 MG
     Dates: start: 20101201
  8. RASILEZ [Suspect]
     Dosage: 300 MG
     Dates: start: 20110601, end: 20120111
  9. LERCANIDIPINE [Concomitant]

REACTIONS (1)
  - CORONARY ARTERY DISEASE [None]
